FAERS Safety Report 4843626-3 (Version None)
Quarter: 2005Q4

REPORT INFORMATION
  Report Type: 
  Country: None (occurrence: None)
  Receive Date: 20051202
  Receipt Date: 20051122
  Transmission Date: 20060501
  Serious: Yes (Hospitalization)
  Sender: FDA-Public Use
  Company Number: US-JNJFOC-20051105425

PATIENT
  Sex: Male

DRUGS (1)
  1. REGRANEX [Suspect]
     Route: 061
     Dates: start: 20051001

REACTIONS (1)
  - POST PROCEDURAL HAEMORRHAGE [None]
